FAERS Safety Report 25756100 (Version 1)
Quarter: 2025Q3

REPORT INFORMATION
  Report Type: Spontaneous
  Country: EU (occurrence: EU)
  Receive Date: 20250903
  Receipt Date: 20250903
  Transmission Date: 20251021
  Serious: Yes (Other)
  Sender: B. BRAUN MEDICAL INC.
  Company Number: EU-B. Braun Medical Inc.-ES-BBM-202503386

PATIENT
  Age: 31 Year
  Sex: Male

DRUGS (6)
  1. ACETAMINOPHEN [Suspect]
     Active Substance: ACETAMINOPHEN
     Indication: Suicide attempt
  2. IMEPITOIN [Suspect]
     Active Substance: IMEPITOIN
     Indication: Suicide attempt
  3. SERTRALINE [Suspect]
     Active Substance: SERTRALINE HYDROCHLORIDE
     Indication: Suicide attempt
  4. BUPROPION [Suspect]
     Active Substance: BUPROPION
     Indication: Suicide attempt
  5. CLORAZEPATE DIPOTASSIUM [Suspect]
     Active Substance: CLORAZEPATE DIPOTASSIUM
     Indication: Suicide attempt
  6. IBUPROFEN [Suspect]
     Active Substance: IBUPROFEN
     Indication: Suicide attempt

REACTIONS (3)
  - Somnolence [Recovered/Resolved]
  - Slow speech [Recovered/Resolved]
  - Intentional overdose [Unknown]
